FAERS Safety Report 9683542 (Version 3)
Quarter: 2013Q4

REPORT INFORMATION
  Report Type: Report from Study
  Country: CA (occurrence: CA)
  Receive Date: 20131112
  Receipt Date: 20131118
  Transmission Date: 20140711
  Serious: Yes (Hospitalization, Other)
  Sender: FDA-Public Use
  Company Number: CA-ABBVIE-13P-028-1086896-00

PATIENT
  Age: 77 Year
  Sex: Male

DRUGS (10)
  1. HUMIRA [Suspect]
     Indication: ANKYLOSING SPONDYLITIS
     Route: 058
     Dates: start: 20120328, end: 201303
  2. HUMIRA [Suspect]
     Route: 058
     Dates: start: 20131113
  3. ACCUPRIL [Concomitant]
     Indication: PRODUCT USED FOR UNKNOWN INDICATION
  4. ATORVASTATINE [Concomitant]
     Indication: PRODUCT USED FOR UNKNOWN INDICATION
     Dosage: AT HS
  5. CELEBREX [Concomitant]
     Indication: PRODUCT USED FOR UNKNOWN INDICATION
     Dosage: PNR
  6. MYLAN NITRO PUMP [Concomitant]
     Indication: PRODUCT USED FOR UNKNOWN INDICATION
  7. NOVO-DILTIAZEM [Concomitant]
     Indication: PRODUCT USED FOR UNKNOWN INDICATION
  8. OMEPRAZOLE [Concomitant]
     Indication: PRODUCT USED FOR UNKNOWN INDICATION
  9. PRADAX [Concomitant]
     Indication: PRODUCT USED FOR UNKNOWN INDICATION
  10. TENORMIN [Concomitant]
     Indication: PRODUCT USED FOR UNKNOWN INDICATION

REACTIONS (4)
  - Poor peripheral circulation [Unknown]
  - Peripheral vascular disorder [Not Recovered/Not Resolved]
  - Peripheral coldness [Unknown]
  - Skin discolouration [Unknown]
